FAERS Safety Report 6038636-7 (Version None)
Quarter: 2009Q1

REPORT INFORMATION
  Report Type: 
  Country: None (occurrence: None)
  Receive Date: 20090115
  Receipt Date: 20090106
  Transmission Date: 20090719
  Serious: Yes (Death, Other)
  Sender: FDA-Public Use
  Company Number: US-JNJFOC-20081101637

PATIENT
  Sex: Male
  Weight: 109.77 kg

DRUGS (9)
  1. REMICADE [Suspect]
     Indication: RHEUMATOID ARTHRITIS
     Route: 042
  2. ASPIRIN [Concomitant]
     Route: 048
  3. FOLIC ACID [Concomitant]
     Route: 048
  4. GLIPIZIDE [Concomitant]
  5. METFORMIN [Concomitant]
     Route: 048
  6. METHOTREXATE [Concomitant]
     Route: 048
  7. MIDRIN [Concomitant]
     Dosage: 100 MG 1-2 EVERY 2 HOURS
     Route: 048
  8. LYRICA [Concomitant]
     Route: 048
  9. VERAMYST [Concomitant]
     Route: 055

REACTIONS (4)
  - BLINDNESS UNILATERAL [None]
  - FACIAL PALSY [None]
  - NEOPLASM MALIGNANT [None]
  - NEUROPATHY PERIPHERAL [None]
